FAERS Safety Report 4456967-9 (Version None)
Quarter: 2004Q3

REPORT INFORMATION
  Report Type: 
  Country: None (occurrence: None)
  Receive Date: 20040921
  Receipt Date: 20040907
  Transmission Date: 20050211
  Serious: Yes (Hospitalization)
  Sender: FDA-Public Use
  Company Number: 2004CG01761

PATIENT
  Age: 60 Year
  Sex: Male

DRUGS (7)
  1. XYLOCAINE [Suspect]
     Indication: LOCAL ANAESTHESIA
     Dates: start: 20020311, end: 20040311
  2. DIPROSONE [Suspect]
     Dates: start: 20040210, end: 20040310
  3. ROZACREME [Suspect]
     Dates: start: 20040311, end: 20040311
  4. SERMION [Concomitant]
  5. VASOBRAL [Concomitant]
  6. PREVISCAN [Concomitant]
  7. TOLEXINE [Concomitant]

REACTIONS (4)
  - CONDITION AGGRAVATED [None]
  - DISEASE RECURRENCE [None]
  - ECZEMA [None]
  - ROSACEA [None]
